FAERS Safety Report 9680145 (Version 1)
Quarter: 2013Q4

REPORT INFORMATION
  Report Type: Spontaneous
  Country: US (occurrence: US)
  Receive Date: 20131111
  Receipt Date: 20131111
  Transmission Date: 20140711
  Serious: Yes (Hospitalization)
  Sender: FDA-Public Use
  Company Number: US-BIOGENIDEC-2013BI106626

PATIENT
  Sex: Male

DRUGS (1)
  1. AVONEX [Suspect]
     Indication: MULTIPLE SCLEROSIS
     Route: 030
     Dates: start: 20050323

REACTIONS (7)
  - Gastrointestinal tube insertion [Unknown]
  - Tracheostomy [Unknown]
  - Pain [Unknown]
  - Multiple sclerosis [Unknown]
  - Pneumonia [Unknown]
  - Muscular weakness [Unknown]
  - Muscle spasms [Unknown]
